FAERS Safety Report 9968509 (Version 1)
Quarter: 2014Q1

REPORT INFORMATION
  Report Type: Report from Study
  Country: US (occurrence: US)
  Receive Date: 20140306
  Receipt Date: 20140306
  Transmission Date: 20141002
  Serious: No
  Sender: FDA-Public Use
  Company Number: US-ABBVIE-13P-163-1147056-00

PATIENT
  Age: 31 Year
  Sex: Male

DRUGS (6)
  1. HUMIRA [Suspect]
     Indication: COLITIS ULCERATIVE
     Route: 058
     Dates: start: 20130604, end: 20130604
  2. HUMIRA [Suspect]
     Route: 058
     Dates: start: 20130618, end: 20130618
  3. HUMIRA [Suspect]
     Route: 058
     Dates: start: 20130702
  4. MENS MULTIPLE VITAMIN [Concomitant]
     Indication: PRODUCT USED FOR UNKNOWN INDICATION
  5. APRISO [Concomitant]
     Indication: PRODUCT USED FOR UNKNOWN INDICATION
  6. UNKNOWN ANTI-DIARRHEALS [Concomitant]
     Indication: PRODUCT USED FOR UNKNOWN INDICATION

REACTIONS (2)
  - Clostridium difficile infection [Recovered/Resolved]
  - Crohn^s disease [Not Recovered/Not Resolved]
